FAERS Safety Report 14329802 (Version 2)
Quarter: 2018Q1

REPORT INFORMATION
  Report Type: Spontaneous
  Country: US (occurrence: US)
  Receive Date: 20171227
  Receipt Date: 20180129
  Transmission Date: 20180509
  Serious: Yes (Other)
  Sender: FDA-Public Use
  Company Number: US-PROCTER_AND_GAMBLE-GS17141858

PATIENT
  Age: 40 Year
  Sex: Male

DRUGS (1)
  1. CREST PRO-HEALTH CLINICAL GUM PROTECTION [Suspect]
     Active Substance: STANNOUS FLUORIDE
     Dosage: USE A STRIP AMOUNT OF THE PRODUCT, 2 /DAY
     Route: 002
     Dates: end: 20171219

REACTIONS (4)
  - Unevaluable event [Unknown]
  - Oral discomfort [Unknown]
  - Toothache [Not Recovered/Not Resolved]
  - Oral mucosal exfoliation [Not Recovered/Not Resolved]
